FAERS Safety Report 16440247 (Version 4)
Quarter: 2020Q2

REPORT INFORMATION
  Report Type: Report from Study
  Country: US (occurrence: US)
  Receive Date: 20190617
  Receipt Date: 20200605
  Transmission Date: 20200713
  Serious: Yes (Death, Hospitalization, Other)
  Sender: FDA-Public Use
  Company Number: US-BAUSCH-BL-2019-017528

PATIENT
  Age: 68 Year
  Sex: Male
  Weight: 65.83 kg

DRUGS (7)
  1. FOLIC ACID. [Concomitant]
     Active Substance: FOLIC ACID
     Indication: PRODUCT USED FOR UNKNOWN INDICATION
  2. LOTEMAX [Suspect]
     Active Substance: LOTEPREDNOL ETABONATE
     Indication: PRODUCT USE IN UNAPPROVED INDICATION
  3. ALBUTEROL. [Concomitant]
     Active Substance: ALBUTEROL
     Indication: PRODUCT USED FOR UNKNOWN INDICATION
  4. HYDROCODONE [Concomitant]
     Active Substance: HYDROCODONE
     Indication: PRODUCT USED FOR UNKNOWN INDICATION
     Dosage: STRENGTH: 10/300 MG
  5. LOTEMAX [Suspect]
     Active Substance: LOTEPREDNOL ETABONATE
     Indication: INTRAOCULAR PRESSURE INCREASED
     Dosage: LAST COUPLE OF YEARS, TWICE A DAY INTO THE RIGHT EYE. PROBABLY ONE DROP TWICE A DAY (NOT SURE)
     Route: 047
  6. TIMOPTIC [Suspect]
     Active Substance: TIMOLOL MALEATE
     Indication: INTRAOCULAR PRESSURE INCREASED
     Dosage: IN THE RIGHT EYE. PROBABLY ONE DROP TWICE A DAY (THE PATIENT WAS NOT SURE)
     Route: 047
     Dates: start: 20160606
  7. ZOFRAN [Concomitant]
     Active Substance: ONDANSETRON HYDROCHLORIDE
     Indication: PRODUCT USED FOR UNKNOWN INDICATION

REACTIONS (7)
  - Product use in unapproved indication [Unknown]
  - Colon cancer [Unknown]
  - Blindness unilateral [Recovered/Resolved]
  - Rectal cancer [Unknown]
  - Lung neoplasm malignant [Unknown]
  - Death [Fatal]
  - Embolism [Unknown]

NARRATIVE: CASE EVENT DATE: 201906
